FAERS Safety Report 20793318 (Version 1)
Quarter: 2022Q2

REPORT INFORMATION
  Report Type: Spontaneous
  Country: DE (occurrence: DE)
  Receive Date: 20220506
  Receipt Date: 20220506
  Transmission Date: 20220721
  Serious: Yes (Hospitalization)
  Sender: FDA-Public Use
  Company Number: None

PATIENT
  Age: 80 Year
  Sex: Female

DRUGS (1)
  1. DARZALEX [Suspect]
     Active Substance: DARATUMUMAB
     Indication: Plasma cell myeloma
     Dosage: 1800MG
     Route: 058
     Dates: start: 20210414, end: 20211013

REACTIONS (3)
  - Disturbance in attention [Recovering/Resolving]
  - Rash [Recovered/Resolved with Sequelae]
  - Renal failure [Unknown]

NARRATIVE: CASE EVENT DATE: 20211013
